FAERS Safety Report 7332035-3 (Version None)
Quarter: 2011Q1

REPORT INFORMATION
  Report Type: 
  Country: None (occurrence: None)
  Receive Date: 20110304
  Receipt Date: 20110302
  Transmission Date: 20110831
  Serious: Yes (Hospitalization)
  Sender: FDA-Public Use
  Company Number: DE-PFIZER INC-2010063219

PATIENT
  Age: 75 Year
  Sex: Male

DRUGS (13)
  1. PANTOZOL [Suspect]
     Indication: PROPHYLAXIS AGAINST GASTROINTESTINAL ULCER
     Dosage: 40 MG, 1X/DAY
     Route: 048
     Dates: start: 20080806
  2. EUTHYROX [Suspect]
     Indication: HYPOTHYROIDISM
     Dosage: 75 UG, 1X/DAY
     Route: 048
     Dates: start: 20081206
  3. DIAMOX - SLOW RELEASE [Suspect]
     Indication: GLAUCOMA
     Dosage: 250 MG, 2X/DAY
     Route: 048
     Dates: start: 20081208
  4. SIMVASTATIN [Suspect]
     Indication: HYPERCHOLESTEROLAEMIA
     Dosage: UNK
     Route: 048
     Dates: start: 20081208
  5. CLOPIDOGREL [Suspect]
     Indication: THROMBOSIS PROPHYLAXIS
     Dosage: UNK
     Route: 048
     Dates: start: 20081206
  6. INSULIN GLULISINE [Suspect]
     Indication: DIABETES MELLITUS
     Dosage: DAILY DOSE ACCORDING TO BLOOD GLUCOSE
     Route: 058
     Dates: start: 20081206
  7. TOREM [Suspect]
     Indication: RENAL FAILURE
     Dosage: 10 MG, 1X/DAY
     Route: 048
     Dates: start: 20080806
  8. ALLOPURINOL [Suspect]
     Indication: HYPERURICAEMIA
     Dosage: UNK
     Route: 048
     Dates: start: 20090526
  9. LANTUS [Suspect]
     Indication: DIABETES MELLITUS
     Dosage: DAILY DOSE ACCORDING TO BLOOD GLUCOSE
     Route: 058
     Dates: start: 20081206
  10. DESAL [Suspect]
     Indication: OEDEMA
     Dosage: 6-7 IN TOTAL NOS
     Route: 048
     Dates: start: 20090530
  11. NORVASC [Suspect]
     Indication: CORONARY ARTERY DISEASE
     Dosage: 5 MG, 1X/DAY
     Route: 048
     Dates: start: 20081206
  12. ASPIRIN [Suspect]
     Indication: THROMBOSIS PROPHYLAXIS
     Dosage: 100 MG, 1X/DAY
     Route: 048
     Dates: start: 20081208
  13. CONCOR PLUS [Suspect]
     Indication: CORONARY ARTERY DISEASE
     Dosage: 2.5 MG, 1X/DAY
     Route: 048
     Dates: start: 20081218

REACTIONS (1)
  - STEVENS-JOHNSON SYNDROME [None]
